FAERS Safety Report 19029134 (Version 4)
Quarter: 2021Q2

REPORT INFORMATION
  Report Type: Report from Study
  Country: FR (occurrence: FR)
  Receive Date: 20210318
  Receipt Date: 20210429
  Transmission Date: 20210717
  Serious: Yes (Other)
  Sender: FDA-Public Use
  Company Number: FR-JNJFOC-20210313296

PATIENT
  Age: 61 Year
  Sex: Female

DRUGS (7)
  1. SPRAVATO [Suspect]
     Active Substance: ESKETAMINE
     Indication: DEPRESSION
     Dates: start: 20210302
  2. SPRAVATO [Suspect]
     Active Substance: ESKETAMINE
     Dates: start: 20210304
  3. KARDEGIC [Concomitant]
     Active Substance: ASPIRIN DL-LYSINE
     Indication: ANTICOAGULANT THERAPY
     Dates: start: 20190601
  4. SPRAVATO [Suspect]
     Active Substance: ESKETAMINE
     Dates: start: 20210316
  5. DEROXAT [Concomitant]
     Active Substance: PAROXETINE HYDROCHLORIDE
     Indication: ANTIDEPRESSANT THERAPY
     Dates: start: 20190601
  6. LYSANXIA [Concomitant]
     Active Substance: PRAZEPAM
     Indication: ANXIETY
     Dates: start: 20190601
  7. LYRICA [Concomitant]
     Active Substance: PREGABALIN
     Indication: ANXIETY
     Dates: start: 20190601

REACTIONS (4)
  - Dizziness [Recovered/Resolved]
  - Drug ineffective [Unknown]
  - Dissociative disorder [Recovered/Resolved]
  - Blood pressure increased [Recovered/Resolved]

NARRATIVE: CASE EVENT DATE: 20210302
